FAERS Safety Report 5601108-5 (Version None)
Quarter: 2008Q1

REPORT INFORMATION
  Report Type: 
  Country: None (occurrence: None)
  Receive Date: 20080108
  Receipt Date: 20071112
  Transmission Date: 20080703
  Serious: Yes (Other)
  Sender: FDA-Public Use
  Company Number: PERC20070082

PATIENT
  Age: 51 Year
  Sex: Male
  Weight: 86.1834 kg

DRUGS (2)
  1. PERCOCET [Suspect]
     Indication: BREAKTHROUGH PAIN
     Dosage: 1 TAB Q2H, PER ORAL
     Route: 048
     Dates: start: 19970101
  2. OPANA ER [Suspect]
     Indication: BACK PAIN
     Dosage: 40 MG, BID, PER ORAL
     Route: 048
     Dates: start: 20070901

REACTIONS (1)
  - SUICIDAL IDEATION [None]
